FAERS Safety Report 16544914 (Version 2)
Quarter: 2019Q3

REPORT INFORMATION
  Report Type: Spontaneous
  Country: FR (occurrence: FR)
  Receive Date: 20190709
  Receipt Date: 20190719
  Transmission Date: 20191004
  Serious: Yes (Hospitalization, Other)
  Sender: FDA-Public Use
  Company Number: FR-MYLANLABS-2019M1062276

PATIENT
  Age: 45 Year
  Sex: Female
  Weight: 119 kg

DRUGS (17)
  1. PANTOPRAZOLE [Suspect]
     Active Substance: PANTOPRAZOLE
     Indication: STRESS ULCER
     Dosage: 20 MG, QD
     Route: 048
     Dates: start: 20181020, end: 20181113
  2. PANTOPRAZOLE [Suspect]
     Active Substance: PANTOPRAZOLE
     Dosage: 20 MG, QD
     Route: 048
     Dates: start: 20181116, end: 20181230
  3. MEROPENEM. [Concomitant]
     Active Substance: MEROPENEM
     Dosage: 2 G, BID
     Route: 042
     Dates: start: 20181229, end: 20190105
  4. VANCOMYCIN [Suspect]
     Active Substance: VANCOMYCIN
     Indication: OSTEITIS
     Dosage: UNK
     Route: 042
     Dates: start: 20181126, end: 20181228
  5. FOSFOCINE [Concomitant]
     Active Substance: FOSFOMYCIN
     Dosage: 4 G, QID
     Route: 042
     Dates: start: 20190108, end: 20190108
  6. MEROPENEM. [Concomitant]
     Active Substance: MEROPENEM
     Indication: OSTEITIS
     Dosage: 2 G, TID
     Route: 042
     Dates: start: 20181126, end: 20181228
  7. FOSFOCINE [Concomitant]
     Active Substance: FOSFOMYCIN
     Indication: OSTEITIS
     Dosage: 4 G, BID
     Route: 042
     Dates: start: 20190102, end: 20190107
  8. FOSFOCINE [Concomitant]
     Active Substance: FOSFOMYCIN
     Indication: MENINGITIS
     Dosage: 4 G, QID
     Route: 042
     Dates: start: 20181229, end: 20190101
  9. MEROPENEM. [Concomitant]
     Active Substance: MEROPENEM
     Indication: MENINGITIS
     Dosage: 2 G, TID
     Route: 042
     Dates: start: 20181127, end: 20190105
  10. CITALOPRAM [Concomitant]
     Active Substance: CITALOPRAM HYDROBROMIDE
     Dosage: 20 MG
  11. AZTREONAM. [Concomitant]
     Active Substance: AZTREONAM
     Dosage: 2 G, TID
  12. LANSOPRAZOLE. [Concomitant]
     Active Substance: LANSOPRAZOLE
     Dosage: 15 MG, QD
     Dates: start: 20190101
  13. FERROSTRANE [Concomitant]
     Active Substance: SODIUM FEREDETATE
     Dosage: 15 ML, BID
  14. VANCOMYCIN [Suspect]
     Active Substance: VANCOMYCIN
     Indication: MENINGITIS
     Dosage: UNK
     Route: 042
     Dates: start: 20181127, end: 20181228
  15. PANTOPRAZOLE [Suspect]
     Active Substance: PANTOPRAZOLE
     Dosage: 20 MG, QD
     Route: 048
     Dates: start: 20181121, end: 20190101
  16. TARDYFERON [Suspect]
     Active Substance: FERROUS SULFATE
     Indication: IRON DEFICIENCY
     Dosage: 80 MG, BID
     Route: 048
     Dates: start: 20181121, end: 20190102
  17. FUMAFER [Concomitant]
     Active Substance: FERROUS FUMARATE
     Dosage: UNK
     Dates: start: 20190103

REACTIONS (10)
  - Immunoglobulins decreased [Unknown]
  - Blood albumin decreased [Unknown]
  - Rash [Recovered/Resolved]
  - Pruritus [Not Recovered/Not Resolved]
  - Generalised erythema [Not Recovered/Not Resolved]
  - Oedema peripheral [Not Recovered/Not Resolved]
  - Agranulocytosis [Recovering/Resolving]
  - Skin exfoliation [Not Recovered/Not Resolved]
  - Red man syndrome [Not Recovered/Not Resolved]
  - Rash generalised [Not Recovered/Not Resolved]

NARRATIVE: CASE EVENT DATE: 20181122
